FAERS Safety Report 6286693-5 (Version None)
Quarter: 2009Q3

REPORT INFORMATION
  Report Type: 
  Country: None (occurrence: None)
  Receive Date: 20090727
  Receipt Date: 20090727
  Transmission Date: 20100115
  Serious: Yes (Disabling, Other)
  Sender: FDA-Public Use
  Company Number: None

PATIENT
  Sex: Female
  Weight: 117.028 kg

DRUGS (2)
  1. ZICAM COLD REMEDY RAPID MELTS ZICAM OWNED BY MATRIXX [Suspect]
     Indication: HEADACHE
     Dosage: 1 TABLET EVERY 3 HRS. MARCH '09 TO END OF MAR. '09
     Dates: start: 20090301, end: 20090301
  2. ZICAM COLD REMEDY RAPID MELTS ZICAM OWNED BY MATRIXX [Suspect]
     Indication: NASAL CONGESTION
     Dosage: 1 TABLET EVERY 3 HRS. MARCH '09 TO END OF MAR. '09
     Dates: start: 20090301, end: 20090301

REACTIONS (4)
  - AGEUSIA [None]
  - ANOSMIA [None]
  - BRONCHITIS [None]
  - HYPOGEUSIA [None]
